FAERS Safety Report 12117595 (Version 2)
Quarter: 2016Q1

REPORT INFORMATION
  Report Type: Spontaneous
  Country: GB (occurrence: GB)
  Receive Date: 20160226
  Receipt Date: 20160301
  Transmission Date: 20160526
  Serious: Yes (Other)
  Sender: FDA-Public Use
  Company Number: GB-AMGEN-GBRSP2016019457

PATIENT
  Age: 68 Year
  Sex: Female

DRUGS (6)
  1. APREPITANT. [Concomitant]
     Active Substance: APREPITANT
     Dosage: UNK
  2. NEULASTA [Suspect]
     Active Substance: PEGFILGRASTIM
     Indication: PRODUCT USED FOR UNKNOWN INDICATION
     Dosage: UNK
     Route: 065
  3. CARBOPLATIN. [Concomitant]
     Active Substance: CARBOPLATIN
     Dosage: UNK
  4. DENOSUMAB [Concomitant]
     Active Substance: DENOSUMAB
     Dosage: UNK
  5. GEMCITABINE [Concomitant]
     Active Substance: GEMCITABINE\GEMCITABINE HYDROCHLORIDE
     Dosage: UNK
  6. AVENO                              /01337101/ [Concomitant]
     Dosage: UNK

REACTIONS (11)
  - Feeling hot [Unknown]
  - Infrequent bowel movements [Unknown]
  - Impaired driving ability [Unknown]
  - Activities of daily living impaired [Unknown]
  - Anxiety [Unknown]
  - Rash [Unknown]
  - Skin irritation [Unknown]
  - Body temperature abnormal [Recovered/Resolved]
  - Constipation [Recovering/Resolving]
  - Renal cell carcinoma [Unknown]
  - Malaise [Unknown]

NARRATIVE: CASE EVENT DATE: 201602
